FAERS Safety Report 11520483 (Version 1)
Quarter: 2015Q3

REPORT INFORMATION
  Report Type: Spontaneous
  Country: US (occurrence: None)
  Receive Date: 20150917
  Receipt Date: 20150917
  Transmission Date: 20151125
  Serious: Yes (Hospitalization)
  Sender: FDA-Public Use
  Company Number: None

PATIENT
  Age: 32 Year
  Sex: Female
  Weight: 256 kg

DRUGS (8)
  1. NEXIUM [Concomitant]
     Active Substance: ESOMEPRAZOLE MAGNESIUM
  2. HYDROCODONE [Concomitant]
     Active Substance: HYDROCODONE
  3. NECON 1/35 [Suspect]
     Active Substance: ETHINYL ESTRADIOL\NORETHINDRONE
  4. XARELTO [Concomitant]
     Active Substance: RIVAROXABAN
  5. XARELTO [Concomitant]
     Active Substance: RIVAROXABAN
  6. PROAIR HPA [Concomitant]
  7. NORTREL (28 DAY REGIMEN) [Suspect]
     Active Substance: ETHINYL ESTRADIOL\NORETHINDRONE
     Indication: POLYCYSTIC OVARIES
     Route: 048
     Dates: start: 20130828, end: 20150821
  8. METOPROLOL TART [Concomitant]
     Active Substance: METOPROLOL TARTRATE

REACTIONS (2)
  - Thrombosis [None]
  - Pulmonary thrombosis [None]

NARRATIVE: CASE EVENT DATE: 20150821
